FAERS Safety Report 16842450 (Version 4)
Quarter: 2021Q1

REPORT INFORMATION
  Report Type: Spontaneous
  Country: US (occurrence: US)
  Receive Date: 20190924
  Receipt Date: 20210122
  Transmission Date: 20210419
  Serious: Yes (Other)
  Sender: FDA-Public Use
  Company Number: US-ALEXION PHARMACEUTICALS INC.-A201914128

PATIENT
  Age: 6 Week
  Sex: Female

DRUGS (15)
  1. KANUMA [Suspect]
     Active Substance: SEBELIPASE ALFA
     Dosage: 0.08 MG, UNK
     Route: 065
  2. KANUMA [Suspect]
     Active Substance: SEBELIPASE ALFA
     Dosage: 1 MG/KG, UNK
     Route: 065
  3. KANUMA [Suspect]
     Active Substance: SEBELIPASE ALFA
     Dosage: 0.02 MG, UNK
     Route: 065
  4. KANUMA [Suspect]
     Active Substance: SEBELIPASE ALFA
     Dosage: 0.62 MG, UNK
     Route: 065
  5. KANUMA [Suspect]
     Active Substance: SEBELIPASE ALFA
     Dosage: 0.16 MG, UNK
     Route: 065
  6. KANUMA [Suspect]
     Active Substance: SEBELIPASE ALFA
     Dosage: 3 MG/KG, UNK
     Route: 065
  7. KANUMA [Suspect]
     Active Substance: SEBELIPASE ALFA
     Dosage: 0.32 MG, UNK
     Route: 065
  8. KANUMA [Suspect]
     Active Substance: SEBELIPASE ALFA
     Dosage: FIFTH INFUSION
     Route: 065
  9. KANUMA [Suspect]
     Active Substance: SEBELIPASE ALFA
     Dosage: 3 MG/KG, FOURTH INFUSION
     Route: 065
  10. KANUMA [Suspect]
     Active Substance: SEBELIPASE ALFA
     Dosage: 1.3 MG, UNK
     Route: 065
  11. KANUMA [Suspect]
     Active Substance: SEBELIPASE ALFA
     Dosage: 2.5 MG, UNK
     Route: 065
  12. KANUMA [Suspect]
     Active Substance: SEBELIPASE ALFA
     Indication: LYSOSOMAL ACID LIPASE DEFICIENCY
     Dosage: 1 MG/KG, Q2W, FIRST 3 INFUSIONS
     Route: 065
  13. KANUMA [Suspect]
     Active Substance: SEBELIPASE ALFA
     Dosage: SIXTH INFUSION
     Route: 065
  14. KANUMA [Suspect]
     Active Substance: SEBELIPASE ALFA
     Dosage: 0.04 MG, UNK
     Route: 065
  15. KANUMA [Suspect]
     Active Substance: SEBELIPASE ALFA
     Dosage: 2 MG/KG, UNK
     Route: 065

REACTIONS (14)
  - Stridor [Recovered/Resolved]
  - Tachypnoea [Recovered/Resolved]
  - Irritability [Recovered/Resolved]
  - Tachycardia [Recovered/Resolved]
  - Angioedema [Recovered/Resolved]
  - Weight gain poor [Unknown]
  - Drug specific antibody present [Unknown]
  - Anaphylactic reaction [Recovered/Resolved]
  - Vomiting [Recovered/Resolved]
  - Hypoxia [Recovered/Resolved]
  - Tongue erythema [Recovered/Resolved]
  - Respiratory distress [Recovered/Resolved]
  - Neutralising antibodies positive [Unknown]
  - Flushing [Recovered/Resolved]
